FAERS Safety Report 11151426 (Version 1)
Quarter: 2015Q2

REPORT INFORMATION
  Report Type: Report from Study
  Country: BR (occurrence: BR)
  Receive Date: 20150601
  Receipt Date: 20150601
  Transmission Date: 20150821
  Serious: Yes (Hospitalization)
  Sender: FDA-Public Use
  Company Number: BR-BIOGENIDEC-2015BI071957

PATIENT
  Age: 46 Year
  Sex: Male

DRUGS (1)
  1. AVONEX [Suspect]
     Active Substance: INTERFERON BETA-1A
     Indication: MULTIPLE SCLEROSIS
     Route: 030
     Dates: start: 2012

REACTIONS (3)
  - Pituitary tumour removal [Unknown]
  - Muscular weakness [Not Recovered/Not Resolved]
  - Lack of administration site rotation [Not Recovered/Not Resolved]

NARRATIVE: CASE EVENT DATE: 2012
